FAERS Safety Report 7150981-0 (Version None)
Quarter: 2010Q4

REPORT INFORMATION
  Report Type: 
  Country: None (occurrence: None)
  Receive Date: 20101210
  Receipt Date: 20101202
  Transmission Date: 20110411
  Serious: Yes (Death)
  Sender: FDA-Public Use
  Company Number: A0898734A

PATIENT
  Sex: Male

DRUGS (2)
  1. FLOVENT [Suspect]
     Dates: start: 20050425
  2. VENTOLIN [Suspect]
     Dates: start: 20050425

REACTIONS (1)
  - DEATH [None]
